FAERS Safety Report 9520517 (Version 1)
Quarter: 2013Q3

REPORT INFORMATION
  Report Type: Spontaneous
  Country: IT (occurrence: IT)
  Receive Date: 20130913
  Receipt Date: 20130913
  Transmission Date: 20140515
  Serious: Yes (Hospitalization)
  Sender: FDA-Public Use
  Company Number: IT-MYLANLABS-2013S1019823

PATIENT
  Age: 80 Year
  Sex: Male

DRUGS (9)
  1. AZITHROMYCIN [Suspect]
     Indication: PNEUMONITIS
     Route: 048
     Dates: start: 20130819, end: 20130820
  2. CEFEPIME [Suspect]
     Indication: PNEUMONITIS
     Route: 030
     Dates: start: 20130819, end: 20130820
  3. ASCRIPTIN [Concomitant]
     Indication: MYOCARDIAL ISCHAEMIA
  4. DEURSIL [Concomitant]
     Indication: PRODUCT USED FOR UNKNOWN INDICATION
  5. BIFRIZIDE [Concomitant]
     Indication: HYPERTENSION
  6. LASIX [Concomitant]
     Indication: HYPERTENSION
  7. XANAX [Concomitant]
     Indication: PRODUCT USED FOR UNKNOWN INDICATION
  8. HYDROXYCARBAMIDE [Concomitant]
     Indication: MYELOPROLIFERATIVE DISORDER
  9. MANIDIPINA [Concomitant]
     Indication: HYPERTENSION

REACTIONS (3)
  - Erythema [Recovering/Resolving]
  - Oedema peripheral [Recovering/Resolving]
  - Rash [Recovering/Resolving]
